FAERS Safety Report 6500222-X (Version None)
Quarter: 2009Q4

REPORT INFORMATION
  Report Type: 
  Country: None (occurrence: None)
  Receive Date: 20091216
  Receipt Date: 20091207
  Transmission Date: 20100525
  Serious: Yes (Other)
  Sender: FDA-Public Use
  Company Number: BR-PFIZER INC-2009306517

PATIENT
  Age: 77 Year
  Sex: Male
  Weight: 76 kg

DRUGS (2)
  1. VIAGRA [Suspect]
     Dosage: 100 MG, AS NEEDED
     Route: 048
  2. NOOTROPIL [Concomitant]
     Dosage: UNK

REACTIONS (5)
  - ACCIDENT [None]
  - DRUG INEFFECTIVE [None]
  - NASAL CONGESTION [None]
  - NECK INJURY [None]
  - VERTIGO [None]
